FAERS Safety Report 21991567 (Version 1)
Quarter: 2023Q1

REPORT INFORMATION
  Report Type: Spontaneous
  Country: US (occurrence: US)
  Receive Date: 20230214
  Receipt Date: 20230214
  Transmission Date: 20230417
  Serious: No
  Sender: FDA-Public Use
  Company Number: US-Merz Pharmaceuticals GmbH-23-00134

PATIENT
  Sex: Female

DRUGS (2)
  1. XEOMIN [Suspect]
     Active Substance: INCOBOTULINUMTOXINA
     Indication: Product used for unknown indication
     Route: 030
     Dates: start: 202211, end: 202211
  2. XEOMIN [Suspect]
     Active Substance: INCOBOTULINUMTOXINA

REACTIONS (2)
  - Therapeutic response decreased [Unknown]
  - Off label use [Unknown]
